FAERS Safety Report 5894962-3 (Version None)
Quarter: 2008Q3

REPORT INFORMATION
  Report Type: 
  Country: None (occurrence: None)
  Receive Date: 20080924
  Receipt Date: 20080919
  Transmission Date: 20090109
  Serious: Yes (Hospitalization)
  Sender: FDA-Public Use
  Company Number: PHHY2008US05844

PATIENT
  Sex: Male
  Weight: 84.82 kg

DRUGS (12)
  1. ERL 080A ERL+TAB [Suspect]
     Indication: RENAL TRANSPLANT
     Dosage: 1440 MG/DAY
     Route: 048
     Dates: start: 20080305
  2. ERL 080A ERL+TAB [Suspect]
     Dosage: 720 MG/DAY
     Route: 048
     Dates: end: 20080408
  3. ERL 080A ERL+TAB [Suspect]
     Dosage: 720 MG, QD
     Route: 048
     Dates: start: 20080415, end: 20080708
  4. ERL 080A ERL+TAB [Suspect]
     Dosage: 360 MG/ DAY
     Route: 048
     Dates: start: 20080713, end: 20080909
  5. PROGRAF [Concomitant]
     Indication: IMMUNOSUPPRESSION
     Dosage: 4 MG, BID
     Dates: start: 20080312, end: 20080325
  6. PROGRAF [Concomitant]
     Dosage: 4.5 MG, BID
     Dates: start: 20080326, end: 20080403
  7. PROGRAF [Concomitant]
     Dosage: 4 MG, BID
     Dates: start: 20080304, end: 20080304
  8. PROGRAF [Concomitant]
     Dosage: 3 MG, BID
     Dates: start: 20080305, end: 20080305
  9. PROGRAF [Concomitant]
     Dosage: 1 MG, BID
     Dates: start: 20080406
  10. PROGRAF [Concomitant]
     Dosage: 5.5 MG/DAY
     Dates: start: 20080617, end: 20080710
  11. PROGRAF [Concomitant]
     Dosage: 4 MG DAILY
     Dates: start: 20080711, end: 20080712
  12. PROGRAF [Concomitant]
     Dosage: 2 MG DAILY
     Dates: start: 20080713, end: 20080908

REACTIONS (18)
  - ABDOMINAL DISTENSION [None]
  - ASTHENIA [None]
  - BLOOD CREATININE INCREASED [None]
  - BLOOD POTASSIUM INCREASED [None]
  - BLOOD SODIUM DECREASED [None]
  - CEREBRAL DISORDER [None]
  - CLOSTRIDIAL INFECTION [None]
  - DECREASED APPETITE [None]
  - DIARRHOEA [None]
  - DIZZINESS [None]
  - DIZZINESS POSTURAL [None]
  - DRUG LEVEL INCREASED [None]
  - EROSIVE OESOPHAGITIS [None]
  - GASTRITIS [None]
  - NAUSEA [None]
  - ORTHOSTATIC HYPOTENSION [None]
  - VOMITING [None]
  - WHITE BLOOD CELL COUNT INCREASED [None]
